FAERS Safety Report 15392538 (Version 1)
Quarter: 2018Q3

REPORT INFORMATION
  Report Type: Spontaneous
  Country: FR (occurrence: FR)
  Receive Date: 20180917
  Receipt Date: 20180917
  Transmission Date: 20181010
  Serious: Yes (Other)
  Sender: FDA-Public Use
  Company Number: FR-009507513-1809FRA003539

PATIENT
  Age: 23 Year
  Sex: Male
  Weight: 41 kg

DRUGS (2)
  1. ZERBAXA [Suspect]
     Active Substance: CEFTOLOZANE SULFATE\TAZOBACTAM SODIUM
     Indication: PSEUDOMONAS INFECTION
     Dosage: 6 G, QD
     Route: 042
     Dates: start: 20180814, end: 20180827
  2. COLIMYCINE (COLISTIMETHATE SODIUM) [Suspect]
     Active Substance: COLISTIMETHATE SODIUM
     Indication: PSEUDOMONAS INFECTION
     Dosage: 9 MILLION IU, QD
     Route: 041
     Dates: start: 20180604, end: 20180616

REACTIONS (1)
  - Bone pain [Recovered/Resolved]
